FAERS Safety Report 25007182 (Version 1)
Quarter: 2025Q1

REPORT INFORMATION
  Report Type: Report from Study
  Country: US (occurrence: US)
  Receive Date: 20250225
  Receipt Date: 20250225
  Transmission Date: 20250409
  Serious: Yes (Hospitalization)
  Sender: ROCHE
  Company Number: US-ROCHE-10000210794

PATIENT
  Age: 86 Year
  Sex: Female

DRUGS (21)
  1. ZELBORAF [Suspect]
     Active Substance: VEMURAFENIB
     Indication: Malignant melanoma
     Route: 048
     Dates: start: 202411
  2. COTELLIC [Suspect]
     Active Substance: COBIMETINIB FUMARATE
     Indication: Malignant melanoma
     Dosage: TAKE TABLETS FOR 21 DAYS AND 7 DAYS WITHOUT DRUG
     Route: 048
     Dates: start: 202411
  3. BRAFTOVI [Concomitant]
     Active Substance: ENCORAFENIB
  4. MEKTOVI [Concomitant]
     Active Substance: BINIMETINIB
  5. SYNTHROID [Concomitant]
     Active Substance: LEVOTHYROXINE SODIUM
  6. DELTASONE [Concomitant]
     Active Substance: PREDNISONE
  7. METHYLPREDNISOLONE [Concomitant]
     Active Substance: METHYLPREDNISOLONE
  8. ZYLOPRIM [Concomitant]
     Active Substance: ALLOPURINOL
  9. NORVASC [Concomitant]
     Active Substance: AMLODIPINE BESYLATE
  10. LIPITOR [Concomitant]
     Active Substance: ATORVASTATIN CALCIUM
  11. NITROSTAT [Concomitant]
     Active Substance: NITROGLYCERIN
  12. LASIX [Concomitant]
     Active Substance: FUROSEMIDE
  13. MAGONATE [MAGNESIUM GLUCONATE] [Concomitant]
  14. BREO ELLIPTA [Concomitant]
     Active Substance: FLUTICASONE FUROATE\VILANTEROL TRIFENATATE
  15. CANRENOATE POTASSIUM [Concomitant]
     Active Substance: CANRENOATE POTASSIUM
  16. METAMUCIL THERAPY FOR REGULARITY [Concomitant]
     Active Substance: PSYLLIUM HUSK
  17. PRINIVIL [Concomitant]
     Active Substance: LISINOPRIL
  18. TOPROL XL [Concomitant]
     Active Substance: METOPROLOL SUCCINATE
  19. ZOCOR [Concomitant]
     Active Substance: SIMVASTATIN
  20. CLARITHROMYCIN [Concomitant]
     Active Substance: CLARITHROMYCIN
  21. TYLENOL [Concomitant]
     Active Substance: ACETAMINOPHEN

REACTIONS (3)
  - Nausea [Unknown]
  - Vomiting [Unknown]
  - Dehydration [Unknown]

NARRATIVE: CASE EVENT DATE: 20241101
